FAERS Safety Report 17779123 (Version 1)
Quarter: 2020Q2

REPORT INFORMATION
  Report Type: Spontaneous
  Country: US (occurrence: US)
  Receive Date: 20200513
  Receipt Date: 20200513
  Transmission Date: 20200714
  Serious: Yes (Other)
  Sender: FDA-Public Use
  Company Number: US-PFIZER INC-2020190042

PATIENT
  Age: 48 Year
  Sex: Male
  Weight: 236.09 kg

DRUGS (1)
  1. NEURONTIN [Suspect]
     Active Substance: GABAPENTIN
     Dosage: UNK

REACTIONS (3)
  - Urticaria [Unknown]
  - Pancreatitis acute [Unknown]
  - Drug hypersensitivity [Unknown]
